FAERS Safety Report 4489029-5 (Version None)
Quarter: 2004Q4

REPORT INFORMATION
  Report Type: 
  Country: None (occurrence: None)
  Receive Date: 20041026
  Receipt Date: 20041008
  Transmission Date: 20050328
  Serious: Yes (Death)
  Sender: FDA-Public Use
  Company Number: GBS041015737

PATIENT
  Age: 56 Year
  Sex: Female
  Weight: 58 kg

DRUGS (2)
  1. FLUOXETINE HCL [Suspect]
     Dosage: 20 MG/1 DAY
     Dates: start: 20040507
  2. THYROXINE(LEVOTHYROXINE SODIUM) [Concomitant]

REACTIONS (5)
  - ARRHYTHMIA [None]
  - CERVICAL VERTEBRAL FRACTURE [None]
  - DIZZINESS [None]
  - FALL [None]
  - SKULL FRACTURE [None]
